FAERS Safety Report 6428102-9 (Version None)
Quarter: 2009Q4

REPORT INFORMATION
  Report Type: 
  Country: None (occurrence: None)
  Receive Date: 20091030
  Receipt Date: 20091021
  Transmission Date: 20100525
  Serious: Yes (Hospitalization)
  Sender: FDA-Public Use
  Company Number: GXKR2009ES11590

PATIENT
  Age: 81 Year
  Sex: Male

DRUGS (2)
  1. TRAMADOL HCL [Suspect]
     Indication: BACK PAIN
     Dosage: 200 MG, QW4, ORAL
     Route: 048
     Dates: start: 20051206, end: 20060117
  2. DURAGESIC-100 [Suspect]
     Indication: BACK PAIN
     Dosage: 100 MG, BIW, TRANSDERMAL
     Route: 062
     Dates: start: 20051206, end: 20060117

REACTIONS (5)
  - AGGRESSION [None]
  - AGITATION [None]
  - COGNITIVE DISORDER [None]
  - FAECALOMA [None]
  - MECHANICAL ILEUS [None]
